FAERS Safety Report 8833639 (Version 1)
Quarter: 2012Q4

REPORT INFORMATION
  Report Type: 
  Country: US (occurrence: US)
  Receive Date: 20121010
  Receipt Date: 20121010
  Transmission Date: 20130627
  Serious: Yes (Hospitalization)
  Sender: FDA-Public Use
  Company Number: US-MYLANLABS-2012S1018147

PATIENT
  Age: 57 Year
  Sex: Male
  Weight: 78.93 kg

DRUGS (10)
  1. FENTANYL TRANSDERMAL SYSTEM [Suspect]
     Indication: BACK PAIN
     Dosage: Q72HR
     Route: 062
     Dates: start: 200905, end: 2012
  2. FENTANYL TRANSDERMAL SYSTEM [Suspect]
     Indication: SPINAL COLUMN STENOSIS
     Dosage: Q72HR
     Route: 062
     Dates: start: 200905, end: 2012
  3. ACETAMINOPHEN W/HYDROCODONE [Concomitant]
     Indication: PAIN
     Route: 048
     Dates: start: 20120827
  4. GABAPENTIN [Concomitant]
     Indication: NEUROPATHY PERIPHERAL
     Route: 048
     Dates: start: 20120827
  5. SOMA [Concomitant]
     Indication: MUSCLE RELAXANT THERAPY
     Route: 048
     Dates: start: 20120827
  6. AMBIEN [Concomitant]
     Indication: INSOMNIA
     Dates: start: 20120827
  7. LORAZEPAM [Concomitant]
     Dates: start: 20120827
  8. CARAFATE [Concomitant]
     Dates: start: 20120827
  9. SENNA S [Concomitant]
     Dates: start: 20120827
  10. FAMOTIDINE [Concomitant]
     Dates: start: 20120827

REACTIONS (14)
  - Drug effect increased [Recovering/Resolving]
  - Myocardial infarction [Recovered/Resolved]
  - Chest discomfort [Recovered/Resolved]
  - Dyspnoea [Recovered/Resolved]
  - Cardiac flutter [Recovered/Resolved]
  - Muscular weakness [Not Recovered/Not Resolved]
  - Somnolence [Recovered/Resolved]
  - Hyperhidrosis [Recovered/Resolved]
  - Pallor [Recovered/Resolved]
  - Application site rash [Not Recovered/Not Resolved]
  - Application site discolouration [Not Recovered/Not Resolved]
  - Overdose [Unknown]
  - Palpitations [Recovered/Resolved]
  - Confusional state [Recovered/Resolved]
